FAERS Safety Report 7367073-8 (Version None)
Quarter: 2011Q1

REPORT INFORMATION
  Report Type: 
  Country: None (occurrence: None)
  Receive Date: 20110322
  Receipt Date: 20110105
  Transmission Date: 20110831
  Serious: No
  Sender: FDA-Public Use
  Company Number: US-TYCO HEALTHCARE/MALLINCKRODT-T201100064

PATIENT
  Sex: Female
  Weight: 72.562 kg

DRUGS (11)
  1. AMBIEN [Concomitant]
     Dosage: 10 MG, QD
     Route: 048
  2. METHADONE [Suspect]
     Indication: BACK PAIN
     Dosage: 2 TABS QAM, 2 TABS QPM
     Route: 048
  3. CYMBALTA [Concomitant]
     Dosage: 120 MG QHS
     Route: 048
  4. METHADONE [Suspect]
     Indication: WITHDRAWAL SYNDROME
  5. ADDERALL 10 [Concomitant]
     Dosage: 20 MG, TID
     Route: 048
  6. ADVIL LIQUI-GELS [Concomitant]
     Dosage: 1000 MG, PRN
  7. CYCLOBENZAPRINE [Concomitant]
     Dosage: 10 MG, TID
     Route: 048
  8. TRAZODONE [Concomitant]
     Dosage: 150 MG, QD
     Route: 048
  9. NAPROSYN [Concomitant]
     Dosage: 550 MG, QD
     Route: 048
  10. DEPAKOTE [Concomitant]
     Dosage: 1000 MG, QD
     Route: 048
  11. ZIPRASIDONE [Concomitant]
     Dosage: 60 MG, QD
     Route: 048

REACTIONS (1)
  - DRUG SCREEN NEGATIVE [None]
